FAERS Safety Report 8504515-6 (Version None)
Quarter: 2012Q3

REPORT INFORMATION
  Report Type: 
  Country: None (occurrence: None)
  Receive Date: 20120711
  Receipt Date: 20120709
  Transmission Date: 20120928
  Serious: Yes (Other)
  Sender: FDA-Public Use
  Company Number: US-PFIZER INC-2012164453

PATIENT
  Sex: Female
  Weight: 90 kg

DRUGS (4)
  1. DILANTIN [Suspect]
     Indication: CONVULSION
     Dosage: UNK(FIRST DAY)
     Route: 048
     Dates: start: 20120501
  2. KEPPRA XR [Concomitant]
     Dosage: UNK
  3. DILANTIN [Suspect]
     Dosage: 400 MG, 1X/DAY (OUR CAPSULES OF 100MG)
     Route: 048
     Dates: start: 20120701, end: 20120701
  4. DILANTIN [Suspect]
     Dosage: 300 MG, 1X/DAY (THREE CAPSULES OF 100MG)
     Route: 048
     Dates: start: 20120501, end: 20120701

REACTIONS (2)
  - NEURALGIA [None]
  - BURNING SENSATION [None]
